FAERS Safety Report 8849324 (Version 1)
Quarter: 2012Q4

REPORT INFORMATION
  Report Type: 
  Country: FR (occurrence: FR)
  Receive Date: 20121017
  Receipt Date: 20121017
  Transmission Date: 20130627
  Serious: Yes (Hospitalization)
  Sender: FDA-Public Use
  Company Number: PHHY2012FR091617

PATIENT
  Sex: Female

DRUGS (3)
  1. VOLTARENE [Suspect]
     Indication: BACK PAIN
     Dates: start: 20120829, end: 20120901
  2. IBUPROFEN [Suspect]
     Dates: start: 20120828, end: 20120901
  3. DOLIPRANE [Concomitant]

REACTIONS (3)
  - Renal abscess [Recovering/Resolving]
  - Pyelonephritis [Unknown]
  - Condition aggravated [Recovering/Resolving]
